FAERS Safety Report 19481391 (Version 1)
Quarter: 2021Q3

REPORT INFORMATION
  Report Type: Spontaneous
  Country: DE (occurrence: DE)
  Receive Date: 20210701
  Receipt Date: 20210701
  Transmission Date: 20211014
  Serious: Yes (Death, Other)
  Sender: FDA-Public Use
  Company Number: DE-AUROBINDO-AUR-APL-2021-027679

PATIENT
  Age: 69 Year
  Sex: Male

DRUGS (6)
  1. FLUOROURACIL. [Suspect]
     Active Substance: FLUOROURACIL
     Indication: ADENOCARCINOMA GASTRIC
     Dosage: 750 MILLIGRAM (Q3W)
     Route: 065
     Dates: start: 201708, end: 201710
  2. PACLITAXEL. [Suspect]
     Active Substance: PACLITAXEL
     Indication: ADENOCARCINOMA GASTRIC
     Dosage: 8 MILLIGRAM/SQ. METER (UNKNOWN (D1, 8.15))
     Route: 065
     Dates: start: 201701, end: 201704
  3. CISPLATIN. [Suspect]
     Active Substance: CISPLATIN
     Indication: ADENOCARCINOMA GASTRIC
     Dosage: 75 MILLIGRAM/SQ. METER (Q3W)
     Route: 065
     Dates: start: 201708, end: 201710
  4. DOCETAXEL. [Suspect]
     Active Substance: DOCETAXEL
     Indication: ADENOCARCINOMA GASTRIC
     Dosage: 75 MILLIGRAM/SQ. METER (Q3W)
     Route: 065
     Dates: start: 201708, end: 201710
  5. RAMUCIRUMAB [Suspect]
     Active Substance: RAMUCIRUMAB
     Indication: ADENOCARCINOMA GASTRIC
     Dosage: 8 MILLIGRAM/KILOGRAM (UNKNOWN (D1.15, Q4W))
     Route: 065
     Dates: start: 201701, end: 201704
  6. FLUOROURACIL;FOLINIC ACID;IRINOTECAN;OXALIPLATIN [Suspect]
     Active Substance: FLUOROURACIL\IRINOTECAN\LEUCOVORIN\OXALIPLATIN
     Indication: ADENOCARCINOMA GASTRIC
     Dosage: UNK (UNK UNK, UNKNOWN)
     Route: 065
     Dates: start: 201705, end: 201708

REACTIONS (6)
  - Malignant neoplasm progression [Fatal]
  - Abdominal discomfort [Unknown]
  - Weight decreased [Unknown]
  - Decreased appetite [Unknown]
  - Alopecia [Unknown]
  - Hepatic pain [Unknown]
